FAERS Safety Report 5251888-6 (Version None)
Quarter: 2007Q1

REPORT INFORMATION
  Report Type: 
  Country: None (occurrence: None)
  Receive Date: 20070223
  Receipt Date: 20070207
  Transmission Date: 20070707
  Serious: Yes (Other)
  Sender: FDA-Public Use
  Company Number: DSA_29420-2007

PATIENT
  Age: 84 Year
  Sex: Male

DRUGS (4)
  1. CARDIZEM [Suspect]
     Indication: BLOOD PRESSURE INCREASED
     Dosage: DF
     Dates: start: 20061225, end: 20061229
  2. VIAGRA [Suspect]
     Indication: ERECTILE DYSFUNCTION
     Dosage: 50 MG PRN PO
     Route: 048
     Dates: start: 20030101
  3. CIALIS [Suspect]
     Indication: ERECTILE DYSFUNCTION
     Dosage: 20 MG PRN PO
     Route: 048
     Dates: end: 20061225
  4. SUSTRATE [Suspect]
     Dosage: DF
     Dates: start: 20061225, end: 20061229

REACTIONS (4)
  - BLOOD PRESSURE INCREASED [None]
  - CHEST PAIN [None]
  - DIZZINESS [None]
  - MALAISE [None]
